FAERS Safety Report 7916228-X (Version None)
Quarter: 2011Q4

REPORT INFORMATION
  Report Type: 
  Country: None (occurrence: None)
  Receive Date: 20111116
  Receipt Date: 20111111
  Transmission Date: 20120403
  Serious: No
  Sender: FDA-Public Use
  Company Number: US-BIOGENIDEC-2011BI039726

PATIENT
  Sex: Male

DRUGS (4)
  1. COUMADIN [Concomitant]
     Indication: PULMONARY EMBOLISM
  2. TYSABRI [Suspect]
     Indication: MULTIPLE SCLEROSIS
     Route: 042
     Dates: start: 20110501
  3. VICODIN [Concomitant]
     Indication: BACK PAIN
  4. IV MEDICATION (NOS) [Concomitant]
     Indication: MIGRAINE
     Route: 042

REACTIONS (2)
  - BACK PAIN [None]
  - MIGRAINE [None]
